FAERS Safety Report 9607763 (Version 1)
Quarter: 2013Q4

REPORT INFORMATION
  Report Type: Spontaneous
  Country: GB (occurrence: None)
  Receive Date: 20131007
  Receipt Date: 20131007
  Transmission Date: 20140711
  Serious: Yes (Hospitalization)
  Sender: FDA-Public Use
  Company Number: GB-MACLEODS PHARMA-000141

PATIENT
  Sex: Male

DRUGS (3)
  1. DONEPEZIL [Suspect]
     Indication: DEMENTIA
     Dosage: 10.00-MG-1.00 TIMES  / ORAL PER-1.0DAYS
     Route: 048
     Dates: start: 201110, end: 20120817
  2. OXYBUTYNIN(OXYBUTYNIN) [Concomitant]
  3. SIMVASTATIN(SIMVASTATIN) [Concomitant]

REACTIONS (2)
  - Bradycardia [None]
  - Fall [None]
